FAERS Safety Report 12431561 (Version 1)
Quarter: 2016Q2

REPORT INFORMATION
  Report Type: Spontaneous
  Country: US (occurrence: None)
  Receive Date: 20160602
  Receipt Date: 20160602
  Transmission Date: 20160815
  Serious: Yes (Death)
  Sender: FDA-Public Use
  Company Number: None

PATIENT
  Age: 54 Year
  Sex: Female
  Weight: 72.58 kg

DRUGS (1)
  1. ZITHROMAX [Suspect]
     Active Substance: AZITHROMYCIN DIHYDRATE
     Indication: SINUSITIS

REACTIONS (4)
  - Defaecation urgency [None]
  - Rectal polyp [None]
  - Diarrhoea [None]
  - Rectal cancer [None]

NARRATIVE: CASE EVENT DATE: 20130917
